FAERS Safety Report 8901791 (Version 2)
Quarter: 2012Q4

REPORT INFORMATION
  Report Type: 
  Country: US (occurrence: None)
  Receive Date: 20121105
  Receipt Date: 20121121
  Transmission Date: 20130627
  Serious: Yes (Hospitalization, Other)
  Sender: FDA-Public Use
  Company Number: UTC-024689

PATIENT
  Age: 39 Year
  Sex: Female
  Weight: 86.4 kg

DRUGS (2)
  1. REMODULIN [Suspect]
     Indication: PRIMARY PULMONARY HYPERTENSION
     Dosage: 66.24 ug/kg (0.046 ug/kg, 1 in 1 min), intravenous drip
     Dates: start: 20110526
  2. REMODULIN [Suspect]
     Indication: PRIMARY PULMONARY HYPERTENSION

REACTIONS (4)
  - Infection [None]
  - Ascites [None]
  - Right ventricular failure [None]
  - Dialysis related complication [None]
